FAERS Safety Report 22791849 (Version 5)
Quarter: 2023Q4

REPORT INFORMATION
  Report Type: Report from Study
  Country: US (occurrence: US)
  Receive Date: 20230807
  Receipt Date: 20231212
  Transmission Date: 20240110
  Serious: Yes (Hospitalization, Other)
  Sender: FDA-Public Use
  Company Number: US-ACADIA PHARMACEUTICALS INC.-ACA-2023-PIM-003235

PATIENT
  Age: 83 Year
  Sex: Male

DRUGS (8)
  1. NUPLAZID [Suspect]
     Active Substance: PIMAVANSERIN TARTRATE
     Indication: Parkinson^s disease psychosis
     Dosage: 34 MILLIGRAM, QD
     Route: 048
     Dates: start: 20230426
  2. CARBIDOPA\LEVODOPA [Concomitant]
     Active Substance: CARBIDOPA\LEVODOPA
  3. RIVASTIGMINE [Concomitant]
     Active Substance: RIVASTIGMINE
  4. DILTIAZEM [Concomitant]
     Active Substance: DILTIAZEM
  5. ATORVASTATIN [Concomitant]
     Active Substance: ATORVASTATIN
  6. MYRBETRIQ [Concomitant]
     Active Substance: MIRABEGRON
  7. LACTULOSE [Concomitant]
     Active Substance: LACTULOSE
  8. XARELTO [Concomitant]
     Active Substance: RIVAROXABAN

REACTIONS (8)
  - Pulmonary embolism [Unknown]
  - Aspiration [Unknown]
  - Infection [Recovered/Resolved]
  - Urinary tract infection [Recovered/Resolved]
  - Fall [Recovered/Resolved]
  - Therapeutic response unexpected [Unknown]
  - Cough [Not Recovered/Not Resolved]
  - Hallucination [Unknown]

NARRATIVE: CASE EVENT DATE: 20230810
